FAERS Safety Report 5797503-4 (Version None)
Quarter: 2008Q2

REPORT INFORMATION
  Report Type: 
  Country: None (occurrence: None)
  Receive Date: 20080630
  Receipt Date: 20080619
  Transmission Date: 20081010
  Serious: Yes (Hospitalization)
  Sender: FDA-Public Use
  Company Number: 2008AL006878

PATIENT
  Age: 59 Year
  Sex: Female
  Weight: 100.6985 kg

DRUGS (1)
  1. DIGOXIN [Suspect]
     Indication: CARDIAC FAILURE CONGESTIVE
     Dosage: 0.25MG DAILY PO
     Route: 048

REACTIONS (6)
  - ANOREXIA [None]
  - CHEST DISCOMFORT [None]
  - DIABETES MELLITUS [None]
  - DYSGEUSIA [None]
  - MUSCLE SPASMS [None]
  - WEIGHT DECREASED [None]
